FAERS Safety Report 4970126-2 (Version None)
Quarter: 2006Q2

REPORT INFORMATION
  Report Type: 
  Country: None (occurrence: None)
  Receive Date: 20060406
  Receipt Date: 20051202
  Transmission Date: 20061013
  Serious: Yes (Other)
  Sender: FDA-Public Use
  Company Number: 2005096037

PATIENT
  Age: 78 Year
  Sex: Female

DRUGS (14)
  1. BEXTRA [Suspect]
     Indication: SCIATICA
     Dosage: 10 MG (10 MG, 1 IN 1 D)
     Dates: start: 20030603, end: 20030606
  2. ZOCOR [Concomitant]
  3. HYDROCHLOROTHIAZIDE [Concomitant]
  4. PROCARDIA XL [Concomitant]
  5. FOLIC ACID [Concomitant]
  6. CAPTOPRIL [Concomitant]
  7. ATENOLOL [Concomitant]
  8. POTASSIUM [Concomitant]
  9. MAGNESIUM [Concomitant]
  10. COUMADIN [Concomitant]
  11. XANAX [Concomitant]
  12. CALCIUM GLUCONATE [Concomitant]
  13. VITAMIN D [Concomitant]
  14. VITAMIN B6 [Concomitant]

REACTIONS (1)
  - STEVENS-JOHNSON SYNDROME [None]
